FAERS Safety Report 10130124 (Version 1)
Quarter: 2014Q2

REPORT INFORMATION
  Report Type: Spontaneous
  Country: US (occurrence: None)
  Receive Date: 20140425
  Receipt Date: 20140425
  Transmission Date: 20141212
  Serious: Yes (Life-Threatening, Hospitalization, Disabling)
  Sender: FDA-Public Use
  Company Number: None

PATIENT
  Age: 57 Year
  Sex: Male

DRUGS (1)
  1. CORTICOSTEROID [Suspect]

REACTIONS (10)
  - Hypoaesthesia [None]
  - Wrong technique in drug usage process [None]
  - Blood pressure decreased [None]
  - Dizziness [None]
  - Sinus arrhythmia [None]
  - Nodal arrhythmia [None]
  - Atrial flutter [None]
  - Inflammation [None]
  - Erythema [None]
  - Neuropathy peripheral [None]
